FAERS Safety Report 5531756-2 (Version None)
Quarter: 2007Q4

REPORT INFORMATION
  Report Type: 
  Country: None (occurrence: None)
  Receive Date: 20071128
  Receipt Date: 20071116
  Transmission Date: 20080405
  Serious: Yes (Other)
  Sender: FDA-Public Use
  Company Number: 020763

PATIENT
  Age: 19 Year
  Sex: Female
  Weight: 52.2 kg

DRUGS (2)
  1. PLAN B [Suspect]
     Indication: POST COITAL CONTRACEPTION
     Dosage: 2 TABLET, SINGLE, ORAL; 1 TABLET, SINGLE, ORAL
     Route: 048
     Dates: start: 20071116, end: 20071116
  2. PLAN B [Suspect]
     Indication: POST COITAL CONTRACEPTION
     Dosage: 2 TABLET, SINGLE, ORAL; 1 TABLET, SINGLE, ORAL
     Route: 048
     Dates: start: 20071116, end: 20071116

REACTIONS (3)
  - DIZZINESS [None]
  - INAPPROPRIATE SCHEDULE OF DRUG ADMINISTRATION [None]
  - LOSS OF CONSCIOUSNESS [None]
